FAERS Safety Report 9481648 (Version 1)
Quarter: 2013Q3

REPORT INFORMATION
  Report Type: Spontaneous
  Country: US (occurrence: US)
  Receive Date: 20130828
  Receipt Date: 20130828
  Transmission Date: 20140515
  Serious: Yes (Hospitalization)
  Sender: FDA-Public Use
  Company Number: US-AMGEN-KDL198813

PATIENT
  Age: 61 Year
  Sex: Female

DRUGS (2)
  1. ENBREL [Suspect]
     Indication: PSORIATIC ARTHROPATHY
     Dosage: 50 MG, QWK
     Route: 058
     Dates: start: 20060315
  2. METHOTREXATE [Concomitant]
     Dosage: 25 MG, QWK
     Route: 058
     Dates: start: 1994

REACTIONS (8)
  - Pneumonia [Unknown]
  - Pneumonitis [Unknown]
  - Hepatic enzyme increased [Unknown]
  - Asthenia [Unknown]
  - Weight decreased [Unknown]
  - Hallucination [Recovered/Resolved]
  - Dyspnoea [Not Recovered/Not Resolved]
  - Headache [Not Recovered/Not Resolved]
